FAERS Safety Report 15742466 (Version 3)
Quarter: 2020Q1

REPORT INFORMATION
  Report Type: Spontaneous
  Country: US (occurrence: US)
  Receive Date: 20181219
  Receipt Date: 20200319
  Transmission Date: 20200409
  Serious: Yes (Other)
  Sender: FDA-Public Use
  Company Number: PHEH2018US053448

PATIENT
  Sex: Male

DRUGS (1)
  1. TASIGNA [Suspect]
     Active Substance: NILOTINIB
     Indication: CHRONIC MYELOID LEUKAEMIA
     Dosage: 150 MG, BID
     Route: 048
     Dates: start: 20130829, end: 20160116

REACTIONS (33)
  - Peripheral arterial occlusive disease [Unknown]
  - Intermittent claudication [Unknown]
  - Cerebral artery occlusion [Unknown]
  - Weight decreased [Unknown]
  - Tinea pedis [Unknown]
  - Necrosis [Unknown]
  - Fall [Unknown]
  - Peripheral vascular disorder [Unknown]
  - Toxic encephalopathy [Unknown]
  - Chronic kidney disease [Unknown]
  - Arterial insufficiency [Unknown]
  - Oedema peripheral [Unknown]
  - Dermatophytosis of nail [Unknown]
  - Morphoea [Unknown]
  - Muscle spasms [Unknown]
  - Cardiovascular disorder [Unknown]
  - Diabetes mellitus [Unknown]
  - Left ventricular dysfunction [Unknown]
  - Retinal pigment epitheliopathy [Unknown]
  - Cardiac failure congestive [Unknown]
  - Hypertension [Unknown]
  - Cerebral infarction [Unknown]
  - Angina pectoris [Unknown]
  - Cerebrovascular disorder [Unknown]
  - Cataract nuclear [Unknown]
  - Pain in extremity [Unknown]
  - Cataract [Unknown]
  - Renal injury [Unknown]
  - Coronary artery disease [Unknown]
  - Carotid artery stenosis [Unknown]
  - Balance disorder [Unknown]
  - Cerebrovascular accident [Unknown]
  - Arteriosclerosis [Unknown]
